FAERS Safety Report 5538270-9 (Version None)
Quarter: 2007Q4

REPORT INFORMATION
  Report Type: 
  Country: None (occurrence: None)
  Receive Date: 20071123
  Receipt Date: 20070822
  Transmission Date: 20080405
  Serious: Yes (Other)
  Sender: FDA-Public Use
  Company Number: US-JNJFOC-20070804980

PATIENT
  Age: 43 Year
  Sex: Male

DRUGS (1)
  1. LEVAQUIN [Suspect]
     Indication: GASTROENTERITIS
     Dosage: 500 MG, IN 1 DAY, ORAL
     Route: 048
     Dates: start: 20060826, end: 20060830

REACTIONS (1)
  - NEUROPATHY PERIPHERAL [None]
